FAERS Safety Report 9921034 (Version 1)
Quarter: 2014Q1

REPORT INFORMATION
  Report Type: Spontaneous
  Country: GB (occurrence: GB)
  Receive Date: 20140225
  Receipt Date: 20140225
  Transmission Date: 20141002
  Serious: Yes (Death)
  Sender: FDA-Public Use
  Company Number: GB-JNJFOC-20140213165

PATIENT
  Sex: 0
  Weight: 3.44 kg

DRUGS (2)
  1. ACETAMINOPHEN [Suspect]
     Route: 064
  2. ACETAMINOPHEN [Suspect]
     Indication: PRODUCT USED FOR UNKNOWN INDICATION
     Route: 064

REACTIONS (2)
  - Brain injury [Fatal]
  - Foetal exposure during pregnancy [Unknown]
